FAERS Safety Report 4789415-X (Version None)
Quarter: 2005Q4

REPORT INFORMATION
  Report Type: 
  Country: None (occurrence: None)
  Receive Date: 20051004
  Receipt Date: 20051004
  Transmission Date: 20060501
  Serious: No
  Sender: FDA-Public Use
  Company Number: None

PATIENT
  Age: 57 Year
  Sex: Female
  Weight: 64.4108 kg

DRUGS (4)
  1. ZOMETA [Suspect]
     Indication: BREAST CANCER
     Dosage: 4 MG IV Q MONTH
     Route: 042
     Dates: start: 20030101, end: 20050701
  2. ZOMETA [Suspect]
     Indication: METASTASES TO BONE
     Dosage: 4 MG IV Q MONTH
     Route: 042
     Dates: start: 20030101, end: 20050701
  3. FASLODEX [Concomitant]
  4. XELODA [Concomitant]

REACTIONS (4)
  - BONE DISORDER [None]
  - HAEMORRHAGE [None]
  - OSTEONECROSIS [None]
  - TOOTH EXTRACTION [None]
